FAERS Safety Report 16075506 (Version 7)
Quarter: 2020Q2

REPORT INFORMATION
  Report Type: Report from Study
  Country: KR (occurrence: KR)
  Receive Date: 20190315
  Receipt Date: 20200605
  Transmission Date: 20200713
  Serious: Yes (Death)
  Sender: FDA-Public Use
  Company Number: KR-ROCHE-2216705

PATIENT
  Age: 84 Year
  Sex: Female
  Weight: 42.05 kg

DRUGS (35)
  1. CHLORAMBUCIL [Suspect]
     Active Substance: CHLORAMBUCIL
     Dosage: CYCLE 1
     Route: 048
     Dates: start: 20181129, end: 20181129
  2. CHLORAMBUCIL [Suspect]
     Active Substance: CHLORAMBUCIL
     Dosage: CYCLE 2
     Route: 048
     Dates: start: 20181210, end: 20181210
  3. VANCO [Concomitant]
     Active Substance: VANCOMYCIN
     Route: 042
  4. ALDACTONE [Concomitant]
     Active Substance: SPIRONOLACTONE
     Route: 048
     Dates: start: 20190219
  5. GLIATILIN [Concomitant]
     Active Substance: CHOLINE ALFOSCERATE
     Indication: ANGINA PECTORIS
     Route: 048
     Dates: start: 20190226, end: 20190226
  6. ELROTON [Concomitant]
     Route: 048
     Dates: start: 2018, end: 20190220
  7. OBINUTUZUMAB. [Suspect]
     Active Substance: OBINUTUZUMAB
     Dosage: CYCLE 3 DAY 1
     Route: 042
     Dates: start: 20190109, end: 20190109
  8. CHLORAMBUCIL [Suspect]
     Active Substance: CHLORAMBUCIL
     Indication: CHRONIC LYMPHOCYTIC LEUKAEMIA
     Dosage: CYCLE 1
     Route: 048
     Dates: start: 20181115, end: 20181115
  9. CHLORAMBUCIL [Suspect]
     Active Substance: CHLORAMBUCIL
     Dosage: CYCLE 3
     Route: 048
     Dates: start: 20190109, end: 20190109
  10. CHLORPHENIRAMINE MALEATE. [Concomitant]
     Active Substance: CHLORPHENIRAMINE MALEATE
     Indication: PREMEDICATION
     Dosage: 1 AMP (4 MG/2 ML)
     Route: 042
     Dates: start: 20181115
  11. GANAKHAN [Concomitant]
     Indication: PROPHYLAXIS
     Route: 048
     Dates: start: 20181109
  12. SODIUM BICARBONATE. [Concomitant]
     Active Substance: SODIUM BICARBONATE
     Route: 065
     Dates: start: 20181115, end: 20181129
  13. VANCOMYCIN [Concomitant]
     Active Substance: VANCOMYCIN
     Dosage: 0.6 UNIT OTHER.
     Route: 065
     Dates: start: 20181120, end: 20181201
  14. CHLORAMBUCIL [Suspect]
     Active Substance: CHLORAMBUCIL
     Dosage: CYCLE 2
     Route: 048
     Dates: start: 20181224, end: 20181224
  15. DEXAMETHASONE DISODIUM PHOSPHATE [Concomitant]
     Active Substance: DEXAMETHASONE SODIUM PHOSPHATE
     Indication: PREMEDICATION
     Dosage: 4 AMP (5 MG/1 ML)
     Route: 042
     Dates: start: 20181115
  16. TACENOL [Concomitant]
     Indication: PREMEDICATION
     Route: 048
     Dates: start: 20181115
  17. ALDACTONE [Concomitant]
     Active Substance: SPIRONOLACTONE
     Route: 048
     Dates: start: 20181128, end: 20181210
  18. LIXIANA [Concomitant]
     Active Substance: EDOXABAN TOSYLATE
     Indication: ANGINA PECTORIS
     Route: 048
     Dates: start: 20180919, end: 20190226
  19. CEFAZOLINE [CEFAZOLIN] [Concomitant]
     Active Substance: CEFAZOLIN
     Route: 042
     Dates: start: 20181104, end: 20181115
  20. OBINUTUZUMAB. [Suspect]
     Active Substance: OBINUTUZUMAB
     Route: 042
     Dates: start: 20181122
  21. ALDACTONE [Concomitant]
     Active Substance: SPIRONOLACTONE
     Indication: ACUTE KIDNEY INJURY
     Route: 048
     Dates: start: 20181128, end: 20181201
  22. OBINUTUZUMAB. [Suspect]
     Active Substance: OBINUTUZUMAB
     Dosage: CYCLE 2 DAY 1
     Route: 042
     Dates: start: 20181210, end: 20181210
  23. OBINUTUZUMAB. [Suspect]
     Active Substance: OBINUTUZUMAB
     Route: 042
     Dates: start: 20181129
  24. OBINUTUZUMAB. [Suspect]
     Active Substance: OBINUTUZUMAB
     Dosage: CYCLE 1 DAY 2
     Route: 042
     Dates: start: 20181116, end: 20181116
  25. CHLORAMBUCIL [Suspect]
     Active Substance: CHLORAMBUCIL
     Dosage: CYCLE 3
     Route: 048
     Dates: start: 20190123, end: 20190123
  26. ZYLORIC [Concomitant]
     Active Substance: ALLOPURINOL
     Indication: PROPHYLAXIS
     Route: 048
     Dates: start: 20181115
  27. ALDACTONE [Concomitant]
     Active Substance: SPIRONOLACTONE
     Route: 048
     Dates: start: 20181123, end: 20181127
  28. ULTRACET [Concomitant]
     Active Substance: ACETAMINOPHEN\TRAMADOL HYDROCHLORIDE
     Route: 048
     Dates: start: 20181030, end: 20181210
  29. OBINUTUZUMAB. [Suspect]
     Active Substance: OBINUTUZUMAB
     Indication: CHRONIC LYMPHOCYTIC LEUKAEMIA
     Dosage: CYCLE 1 DAY 1
     Route: 042
     Dates: start: 20181115, end: 20181115
  30. CRESTOR [Concomitant]
     Active Substance: ROSUVASTATIN CALCIUM
     Indication: ANGINA PECTORIS
     Route: 048
     Dates: start: 2018
  31. ANTIBIO [Concomitant]
     Route: 048
     Dates: start: 20190221, end: 20190223
  32. SEPTRIN [Concomitant]
     Active Substance: SULFAMETHOXAZOLE\TRIMETHOPRIM
     Indication: PROPHYLAXIS
     Route: 048
     Dates: start: 20181115
  33. STILLEN [Concomitant]
     Indication: ANGINA PECTORIS
     Route: 048
     Dates: start: 201806, end: 20190221
  34. NEBISTOL [Concomitant]
     Route: 048
     Dates: start: 20190226
  35. CRESTOR [Concomitant]
     Active Substance: ROSUVASTATIN CALCIUM

REACTIONS (6)
  - Colon cancer [Fatal]
  - Feeling cold [Recovered/Resolved]
  - Aspartate aminotransferase increased [Unknown]
  - Pruritus [Recovered/Resolved]
  - Wound secretion [Recovered/Resolved with Sequelae]
  - Face oedema [Recovered/Resolved]

NARRATIVE: CASE EVENT DATE: 20181115
